FAERS Safety Report 8808622 (Version 1)
Quarter: 2012Q4

REPORT INFORMATION
  Report Type: Spontaneous
  Country: US (occurrence: None)
  Receive Date: 20120920
  Receipt Date: 20120920
  Transmission Date: 20130627
  Serious: Yes (Other)
  Sender: FDA-Public Use
  Company Number: None

PATIENT
  Age: 58 Year
  Sex: Female
  Weight: 102.06 kg

DRUGS (1)
  1. SPIRONOLACTONE [Suspect]
     Indication: ADRENAL DISORDER
     Dosage: 1 tablet, 2x a day, po
     Route: 048
     Dates: start: 20110201, end: 20120801

REACTIONS (3)
  - Muscle spasms [None]
  - Hypoaesthesia [None]
  - Middle insomnia [None]
